FAERS Safety Report 9135084 (Version 1)
Quarter: 2013Q1

REPORT INFORMATION
  Report Type: Spontaneous
  Country: AU (occurrence: AU)
  Receive Date: 20130304
  Receipt Date: 20130304
  Transmission Date: 20140127
  Serious: Yes (Death, Other)
  Sender: FDA-Public Use
  Company Number: AU-ASTELLAS-2013US002267

PATIENT
  Age: 23 Year
  Sex: Female

DRUGS (4)
  1. AMBISOME [Suspect]
     Indication: ASPERGILLUS INFECTION
     Dosage: UNK
     Route: 042
  2. VORICONAZOLE [Suspect]
     Indication: ASPERGILLUS INFECTION
     Dosage: UNK
     Route: 065
  3. ANIDULAFUNGIN [Suspect]
     Indication: ASPERGILLUS INFECTION
     Dosage: UNK
     Route: 065
  4. ITRACONAZOLE [Concomitant]
     Indication: PRODUCT USED FOR UNKNOWN INDICATION
     Dosage: UNK
     Route: 065

REACTIONS (2)
  - Death [Fatal]
  - Liver function test abnormal [Not Recovered/Not Resolved]
